FAERS Safety Report 9323697 (Version 2)
Quarter: 2013Q2

REPORT INFORMATION
  Report Type: Report from Study
  Country: US (occurrence: US)
  Receive Date: 20130603
  Receipt Date: 20130620
  Transmission Date: 20140414
  Serious: Yes (Hospitalization, Other)
  Sender: FDA-Public Use
  Company Number: PHEH2013US011853

PATIENT
  Sex: Female
  Weight: 45.81 kg

DRUGS (11)
  1. ZOMETA [Suspect]
     Indication: PLASMA CELL MYELOMA
     Dosage: UNK
  2. VITAMIN C [Concomitant]
  3. SIMVASTATIN [Concomitant]
  4. REVLIMID [Concomitant]
  5. PRILOSEC [Concomitant]
  6. MVI [Concomitant]
  7. ASA [Concomitant]
  8. BACTRIM [Concomitant]
  9. CALCIUM [Concomitant]
  10. CITRACAL [Concomitant]
  11. DEXAMETHASONE [Concomitant]

REACTIONS (3)
  - Pneumonia [Unknown]
  - Blood iron decreased [Unknown]
  - Bronchial secretion retention [Unknown]
